FAERS Safety Report 4658497-8 (Version None)
Quarter: 2005Q2

REPORT INFORMATION
  Report Type: 
  Country: None (occurrence: None)
  Receive Date: 20050510
  Receipt Date: 20050510
  Transmission Date: 20051028
  Serious: Yes (Life-Threatening, Other)
  Sender: FDA-Public Use
  Company Number: None

PATIENT
  Sex: Female
  Weight: 63.5036 kg

DRUGS (8)
  1. GABAPENTIN [Suspect]
     Indication: FIBROMYALGIA
     Dosage: 300 MG ORALLY 4X/ DAY
     Route: 048
     Dates: start: 20041116
  2. BEXTRA [Concomitant]
  3. HYDROCODONE BITARTRATE [Concomitant]
  4. ROBAXIN [Concomitant]
  5. CHLORZOXAZONE [Concomitant]
  6. PROTONIX [Concomitant]
  7. AMBIEN [Concomitant]
  8. MIGRIN-A [Concomitant]

REACTIONS (9)
  - BACK PAIN [None]
  - DRUG INEFFECTIVE [None]
  - HEADACHE [None]
  - NECK PAIN [None]
  - PAIN IN EXTREMITY [None]
  - SHOULDER PAIN [None]
  - SUICIDAL IDEATION [None]
  - THERAPEUTIC RESPONSE UNEXPECTED WITH DRUG SUBSTITUTION [None]
  - TREMOR [None]
